FAERS Safety Report 5965653-5 (Version None)
Quarter: 2008Q4

REPORT INFORMATION
  Report Type: 
  Country: None (occurrence: None)
  Receive Date: 20081121
  Receipt Date: 20081121
  Transmission Date: 20090506
  Serious: Yes (Disabling, Other)
  Sender: FDA-Public Use
  Company Number: None

PATIENT

DRUGS (1)
  1. MIRENA [Suspect]
     Indication: CONTRACEPTION
     Dates: start: 20081110, end: 20081119

REACTIONS (4)
  - BACK PAIN [None]
  - HAEMORRHAGE [None]
  - MEDICAL DEVICE COMPLICATION [None]
  - MUSCLE SPASMS [None]
